FAERS Safety Report 24634002 (Version 1)
Quarter: 2024Q4

REPORT INFORMATION
  Report Type: Report from Study
  Country: US (occurrence: US)
  Receive Date: 20241118
  Receipt Date: 20241118
  Transmission Date: 20250115
  Serious: Yes (Death)
  Sender: ABBVIE
  Company Number: US-ABBVIE-6007855

PATIENT
  Age: 91 Year
  Sex: Female

DRUGS (1)
  1. HUMIRA [Suspect]
     Active Substance: ADALIMUMAB
     Indication: Product used for unknown indication
     Route: 058
     Dates: start: 20220301

REACTIONS (2)
  - Death [Fatal]
  - Hip fracture [Unknown]

NARRATIVE: CASE EVENT DATE: 20240101
